FAERS Safety Report 5407139-2 (Version None)
Quarter: 2007Q3

REPORT INFORMATION
  Report Type: 
  Country: None (occurrence: None)
  Receive Date: 20070803
  Receipt Date: 20070803
  Transmission Date: 20080115
  Serious: Yes (Hospitalization)
  Sender: FDA-Public Use
  Company Number: None

PATIENT
  Sex: Female
  Weight: 67.13 kg

DRUGS (2)
  1. CARBOPLATIN [Suspect]
     Dosage: 437 MG
  2. TAXOL [Suspect]
     Dosage: 305 MG

REACTIONS (7)
  - ANOREXIA [None]
  - FATIGUE [None]
  - FEBRILE NEUTROPENIA [None]
  - MALAISE [None]
  - MYALGIA [None]
  - VOMITING [None]
  - WEIGHT DECREASED [None]
